FAERS Safety Report 8797647 (Version 3)
Quarter: 2012Q4

REPORT INFORMATION
  Report Type: 
  Country: US (occurrence: US)
  Receive Date: 20120920
  Receipt Date: 20121121
  Transmission Date: 20130627
  Serious: Yes (Hospitalization)
  Sender: FDA-Public Use
  Company Number: US-009507513-1209USA006381

PATIENT
  Age: 43 None
  Sex: Female

DRUGS (4)
  1. VICTRELIS [Suspect]
     Indication: HEPATITIS C
     Dosage: 200 mg -4PO
     Route: 048
     Dates: start: 201203
  2. RIBASPHERE [Concomitant]
     Indication: HEPATITIS C
     Dosage: 200 mg, 3PO
     Route: 048
     Dates: start: 201202
  3. RIBASPHERE [Concomitant]
     Dosage: UNK
  4. PEGASYS [Concomitant]
     Indication: HEPATITIS C
     Dosage: 180 Microgram, qw
     Route: 058
     Dates: start: 201202

REACTIONS (3)
  - Dehydration [Recovering/Resolving]
  - Neutropenia [Unknown]
  - Anaemia [Recovered/Resolved]
